FAERS Safety Report 9683569 (Version 1)
Quarter: 2013Q4

REPORT INFORMATION
  Report Type: Spontaneous
  Country: IT (occurrence: IT)
  Receive Date: 20131112
  Receipt Date: 20131112
  Transmission Date: 20140711
  Serious: Yes (Other)
  Sender: FDA-Public Use
  Company Number: IT-BAYER-2013-133196

PATIENT
  Age: 86 Year
  Sex: Female

DRUGS (7)
  1. GLUCOBAY [Suspect]
     Indication: DIABETES MELLITUS
     Dosage: 100 MG, DAILY
     Route: 048
     Dates: end: 20131006
  2. GLUCOBAY [Suspect]
     Indication: DIABETES MELLITUS
  3. SINEMET [Suspect]
     Indication: PARKINSON^S DISEASE
     Dosage: 2 DF, DAILY
     Route: 048
     Dates: end: 20131006
  4. SINEMET [Suspect]
     Indication: PARKINSON^S DISEASE
     Dosage: UNK
  5. CO-EFFERALGAN [Suspect]
     Indication: OSTEOARTHRITIS
     Dosage: 1 DF, PRN
     Route: 048
     Dates: end: 20131005
  6. CARDIRENE [Concomitant]
  7. LANSOPRAZOLE [Concomitant]

REACTIONS (4)
  - Myoglobin blood increased [Recovering/Resolving]
  - Blood lactate dehydrogenase increased [Recovering/Resolving]
  - Blood creatine phosphokinase increased [Recovering/Resolving]
  - Rhabdomyolysis [Recovering/Resolving]
